FAERS Safety Report 5295374-6 (Version None)
Quarter: 2007Q2

REPORT INFORMATION
  Report Type: 
  Country: None (occurrence: None)
  Receive Date: 20070412
  Receipt Date: 20070402
  Transmission Date: 20071010
  Serious: Yes (Hospitalization, Other)
  Sender: FDA-Public Use
  Company Number: FR-PFIZER INC-2007019808

PATIENT
  Sex: Male
  Weight: 85 kg

DRUGS (9)
  1. TAHOR [Suspect]
     Route: 048
  2. LISINOPRIL W/HYDROCHLOROTHIAZIDE [Suspect]
     Indication: MYOCARDIAL INFARCTION
     Dosage: TEXT:20/12.5MG-FREQ:DAILY
     Dates: start: 20030101, end: 20070317
  3. DRUG, UNSPECIFIED [Concomitant]
  4. ACETYLSALICYLIC ACID SRT [Concomitant]
     Route: 048
  5. OMEPRAZOLE [Concomitant]
     Route: 048
     Dates: start: 19970101
  6. METFORMIN [Concomitant]
     Route: 048
     Dates: start: 20060801
  7. GLICLAZIDE [Concomitant]
     Route: 048
     Dates: start: 20060801
  8. PIOGLITAZONE [Concomitant]
     Dates: start: 20060801
  9. METOPROLOL TARTRATE [Concomitant]
     Route: 048
     Dates: start: 19970101

REACTIONS (2)
  - LIPASE INCREASED [None]
  - PANCREATITIS ACUTE [None]
